FAERS Safety Report 8223300-6 (Version None)
Quarter: 2012Q1

REPORT INFORMATION
  Report Type: 
  Country: None (occurrence: None)
  Receive Date: 20120321
  Receipt Date: 20120307
  Transmission Date: 20120608
  Serious: Yes (Other)
  Sender: FDA-Public Use
  Company Number: US-ROCHE-1048282

PATIENT
  Age: 67 Year
  Sex: Female

DRUGS (5)
  1. MYCOPHENOLATE MOFETIL [Suspect]
     Indication: WEGENER'S GRANULOMATOSIS
     Route: 065
  2. MYCOPHENOLATE MOFETIL [Suspect]
     Dosage: INCREASED FROM 500 TO 2000 MG PER DAY
  3. CYCLOPHOSPHAMIDE [Concomitant]
  4. MYCOPHENOLATE MOFETIL [Suspect]
     Dosage: REDUCTION FROM 2 G TO 1.5 G
  5. SILDENAFIL [Concomitant]
     Indication: PULMONARY HYPERTENSION

REACTIONS (1)
  - ALVEOLAR PROTEINOSIS [None]
